FAERS Safety Report 5323480-6 (Version None)
Quarter: 2007Q2

REPORT INFORMATION
  Report Type: 
  Country: None (occurrence: None)
  Receive Date: 20070514
  Receipt Date: 20070507
  Transmission Date: 20071010
  Serious: Yes (Hospitalization, Other)
  Sender: FDA-Public Use
  Company Number: PHEH2007US07052

PATIENT

DRUGS (1)
  1. ZELNORM [Suspect]
     Indication: IRRITABLE BOWEL SYNDROME
     Dosage: 6 MG, QD
     Dates: start: 20050101, end: 20070330

REACTIONS (6)
  - AORTIC ANEURYSM [None]
  - BURNING SENSATION [None]
  - GAIT DISTURBANCE [None]
  - PAIN [None]
  - PARAESTHESIA [None]
  - STENT PLACEMENT [None]
